FAERS Safety Report 9042144 (Version 1)
Quarter: 2013Q1

REPORT INFORMATION
  Report Type: Report from Study
  Country: US (occurrence: US)
  Receive Date: 20130129
  Receipt Date: 20130129
  Transmission Date: 20140127
  Serious: Yes (Other)
  Sender: FDA-Public Use
  Company Number: US-ABBOTT-12P-163-0907042-00

PATIENT
  Age: 58 Year
  Sex: Male

DRUGS (1)
  1. HUMIRA 40 MG/0.8 ML PEN [Suspect]
     Indication: PSORIATIC ARTHROPATHY

REACTIONS (13)
  - Ligament operation [Not Recovered/Not Resolved]
  - Meniscus operation [Not Recovered/Not Resolved]
  - Hypertension [Unknown]
  - Dyspnoea [Unknown]
  - Paraesthesia [Unknown]
  - Chest discomfort [Unknown]
  - Obstructive airways disorder [Unknown]
  - Bronchitis [Unknown]
  - Pneumonia [Unknown]
  - Vitamin B12 decreased [Unknown]
  - Blood testosterone decreased [Unknown]
  - Coronary artery occlusion [Unknown]
  - Folliculitis [Unknown]
